FAERS Safety Report 5071373-4 (Version None)
Quarter: 2006Q3

REPORT INFORMATION
  Report Type: 
  Country: None (occurrence: None)
  Receive Date: 20060803
  Receipt Date: 20060803
  Transmission Date: 20061208
  Serious: No
  Sender: FDA-Public Use
  Company Number: None

PATIENT
  Age: 40 Year
  Sex: Female

DRUGS (1)
  1. RANITIDINE [Suspect]
     Dosage: SEE IMAGE
     Dates: start: 20050826, end: 20050828

REACTIONS (8)
  - ANTINUCLEAR ANTIBODY POSITIVE [None]
  - AUTOIMMUNE HEPATITIS [None]
  - CHILLS [None]
  - CHOLECYSTITIS [None]
  - GALLBLADDER DISORDER [None]
  - HEPATITIS ACUTE [None]
  - HEPATOCELLULAR DAMAGE [None]
  - HEPATOMEGALY [None]
